FAERS Safety Report 16835103 (Version 2)
Quarter: 2019Q4

REPORT INFORMATION
  Report Type: Spontaneous
  Country: US (occurrence: US)
  Receive Date: 20190920
  Receipt Date: 20191015
  Transmission Date: 20200122
  Serious: No
  Sender: FDA-Public Use
  Company Number: US-SA-2019SA255119

PATIENT
  Age: 56 Year
  Sex: Female

DRUGS (1)
  1. KEVZARA [Suspect]
     Active Substance: SARILUMAB
     Indication: RHEUMATOID ARTHRITIS
     Dosage: 200 MG
     Dates: start: 20190822, end: 20190905

REACTIONS (13)
  - Rash pruritic [Recovered/Resolved]
  - Erythema [Recovered/Resolved]
  - Genital tract inflammation [Unknown]
  - Pain [Unknown]
  - Diarrhoea [Unknown]
  - Skin irritation [Unknown]
  - Injection site bruising [Unknown]
  - Pain [Recovered/Resolved]
  - Injection site erythema [Unknown]
  - Pruritus [Recovered/Resolved]
  - Burning sensation [Recovered/Resolved]
  - Injection site rash [Recovered/Resolved]
  - Anal inflammation [Unknown]

NARRATIVE: CASE EVENT DATE: 2019
